FAERS Safety Report 8879786 (Version 1)
Quarter: 2012Q4

REPORT INFORMATION
  Report Type: 
  Country: US (occurrence: US)
  Receive Date: 20121101
  Receipt Date: 20121101
  Transmission Date: 20130627
  Serious: Yes (Other)
  Sender: FDA-Public Use
  Company Number: US-BAYER-2012-111373

PATIENT
  Age: 74 Year
  Sex: Male

DRUGS (5)
  1. BAYER GENUINE ASPIRIN ORIGINAL STRENGTH [Suspect]
  2. CLOPIDOGREL [Suspect]
     Dosage: Daily dose 75mg
     Dates: start: 2002, end: 2010
  3. CLOPIDOGREL [Suspect]
     Dosage: Daily dose 150mg
     Dates: start: 2010
  4. RANOLAZINE [Concomitant]
     Dosage: UNK
     Dates: start: 2009
  5. PRASUGREL [Concomitant]

REACTIONS (1)
  - Coronary artery restenosis [None]
